FAERS Safety Report 8615993-6 (Version None)
Quarter: 2012Q3

REPORT INFORMATION
  Report Type: 
  Country: None (occurrence: None)
  Receive Date: 20120823
  Receipt Date: 20120809
  Transmission Date: 20120928
  Serious: Yes (Hospitalization)
  Sender: FDA-Public Use
  Company Number: IT-MYLANLABS-2012S1017335

PATIENT
  Age: 23 Year
  Sex: Male

DRUGS (2)
  1. METHADONE HYDROCHLORIDE [Suspect]
     Route: 048
     Dates: start: 20120313, end: 20120313
  2. LORAZEPAM [Suspect]
     Route: 048
     Dates: start: 20120313, end: 20120313

REACTIONS (4)
  - SUICIDE ATTEMPT [None]
  - SOMNOLENCE [None]
  - PSYCHOMOTOR HYPERACTIVITY [None]
  - INTENTIONAL OVERDOSE [None]
